FAERS Safety Report 25988388 (Version 1)
Quarter: 2025Q4

REPORT INFORMATION
  Report Type: Spontaneous
  Country: US (occurrence: US)
  Receive Date: 20251103
  Receipt Date: 20251103
  Transmission Date: 20260117
  Serious: Yes (Other)
  Sender: HIKMA
  Company Number: US-HIKMA PHARMACEUTICALS-US-H14001-25-11471

PATIENT
  Sex: Male

DRUGS (8)
  1. LAPINE T-LYMPHOCYTE IMMUNE GLOBULIN [Suspect]
     Active Substance: LAPINE T-LYMPHOCYTE IMMUNE GLOBULIN
     Indication: Surgical preconditioning
     Dosage: 3 MG/KG/DAY X 3 DAYS (DAY -9 TO -7)
     Route: 065
  2. BUSULFAN [Suspect]
     Active Substance: BUSULFAN
     Indication: Surgical preconditioning
     Dosage: 4 DAYS (DAY -8 TO -5) TO ACHIEVE AN AUC24H OF 3600 TO 6000 ?M*MIN/L (14.78 TO 24.63 M X H/L Q24H)
     Route: 065
  3. CYCLOSPORINE [Suspect]
     Active Substance: CYCLOSPORINE
     Indication: Prophylaxis against transplant rejection
     Dosage: BEGINNING DAY -1
     Route: 065
  4. FLUDARABINE [Suspect]
     Active Substance: FLUDARABINE PHOSPHATE
     Indication: Surgical preconditioning
     Dosage: 3 MG/KG/DAY X 3 DAYS (DAY -9 TO -7)
     Route: 065
  5. HYDROXYUREA [Suspect]
     Active Substance: HYDROXYUREA
     Indication: Surgical preconditioning
     Dosage: 30MG/KG/DAY FROM DAY -40 TO DAY -11
     Route: 065
  6. MYCOPHENOLIC ACID [Suspect]
     Active Substance: MYCOPHENOLIC ACID
     Indication: Prophylaxis against transplant rejection
     Dosage: BEGINNING DAY+1 UNTIL APPROXIMATELY DAY+45
     Route: 065
  7. TACROLIMUS [Suspect]
     Active Substance: TACROLIMUS
     Indication: Prophylaxis against transplant rejection
     Dosage: FOR A MINIMUM OF 3 MONTHS
     Route: 048
  8. THIOTEPA [Suspect]
     Active Substance: THIOTEPA
     Indication: Surgical preconditioning
     Dosage: 5MG/KG/DAY X 2 DAYS (DAY -3 TO -2)
     Route: 065

REACTIONS (1)
  - Transplant failure [Unknown]
